FAERS Safety Report 16565307 (Version 1)
Quarter: 2019Q3

REPORT INFORMATION
  Report Type: Spontaneous
  Country: US (occurrence: US)
  Receive Date: 20190711
  Receipt Date: 20190711
  Transmission Date: 20191004
  Serious: Yes (Death)
  Sender: FDA-Public Use
  Company Number: None

PATIENT
  Age: 75 Year
  Sex: Male

DRUGS (10)
  1. BENZONATATE. [Concomitant]
     Active Substance: BENZONATATE
  2. LINEZOLID. [Concomitant]
     Active Substance: LINEZOLID
  3. ESBRIET [Suspect]
     Active Substance: PIRFENIDONE
     Indication: PULMONARY FIBROSIS
     Route: 048
     Dates: start: 20170721, end: 20190710
  4. FUROSEMIDE. [Concomitant]
     Active Substance: FUROSEMIDE
  5. DRONABINOL. [Concomitant]
     Active Substance: DRONABINOL
  6. DOXYCYC MONO [Concomitant]
     Active Substance: DOXYCYCLINE
  7. LEVOTHYROXINE. [Concomitant]
     Active Substance: LEVOTHYROXINE
  8. FINASTERIDE. [Concomitant]
     Active Substance: FINASTERIDE
  9. TOBRAMYCIN. [Concomitant]
     Active Substance: TOBRAMYCIN
  10. NITROGLYCERN [Concomitant]

REACTIONS (1)
  - Death [None]

NARRATIVE: CASE EVENT DATE: 20190710
